FAERS Safety Report 11139201 (Version 1)
Quarter: 2015Q2

REPORT INFORMATION
  Report Type: Spontaneous
  Country: FR (occurrence: FR)
  Receive Date: 20150527
  Receipt Date: 20150527
  Transmission Date: 20150821
  Serious: Yes (Hospitalization)
  Sender: FDA-Public Use
  Company Number: FR-ASTRAZENECA-2015SE51134

PATIENT
  Age: 84 Year
  Sex: Female

DRUGS (8)
  1. FORLAX [Concomitant]
     Active Substance: POLYETHYLENE GLYCOL 4000
  2. LERCAN [Concomitant]
     Active Substance: LERCANIDIPINE
  3. XEROQUEL [Suspect]
     Active Substance: QUETIAPINE FUMARATE
     Route: 048
     Dates: end: 201408
  4. LEVOTHYROX [Concomitant]
     Active Substance: LEVOTHYROXINE
  5. LYSANXIA [Concomitant]
     Active Substance: PRAZEPAM
     Dosage: 15MG/ML
  6. TEMERIT [Concomitant]
     Active Substance: NEBIVOLOL
  7. EXELON [Concomitant]
     Active Substance: RIVASTIGMINE TARTRATE
     Dosage: STRENGTH: 4.6MG/24H
  8. PLAVIX [Concomitant]
     Active Substance: CLOPIDOGREL BISULFATE

REACTIONS (5)
  - Dementia [Unknown]
  - Tonic clonic movements [Recovered/Resolved]
  - Aphasia [Unknown]
  - Hypothermia [Recovered/Resolved]
  - Off label use [Recovered/Resolved]

NARRATIVE: CASE EVENT DATE: 201408
